FAERS Safety Report 8501565-0 (Version None)
Quarter: 2012Q3

REPORT INFORMATION
  Report Type: 
  Country: None (occurrence: None)
  Receive Date: 20120710
  Receipt Date: 20120702
  Transmission Date: 20120928
  Serious: Yes (Hospitalization, Other)
  Sender: FDA-Public Use
  Company Number: CHPA2012US012052

PATIENT
  Sex: Female

DRUGS (4)
  1. DRUG THERAPY NOS [Concomitant]
     Dosage: UNK, UNK
  2. KEFLEX [Concomitant]
     Dosage: UNK, UNK
  3. EXCEDRIN (MIGRAINE) [Suspect]
     Indication: MIGRAINE
     Dosage: UNK, 2 TO 3 TIMES A WEEK PRN
     Route: 048
  4. PERCOCET [Concomitant]
     Dosage: UNK, UNK

REACTIONS (52)
  - SYNCOPE [None]
  - GASTRITIS [None]
  - SINUSITIS [None]
  - GASTRIC ULCER HAEMORRHAGE [None]
  - DIZZINESS [None]
  - GASTROINTESTINAL HAEMORRHAGE [None]
  - PALPITATIONS [None]
  - GASTRITIS EROSIVE [None]
  - LUNG NEOPLASM [None]
  - SINUS TACHYCARDIA [None]
  - HYPOKALAEMIA [None]
  - LIPASE INCREASED [None]
  - PLATELET COUNT INCREASED [None]
  - ANXIETY [None]
  - VOMITING [None]
  - PAIN [None]
  - FAECES DISCOLOURED [None]
  - BLOOD PRESSURE ORTHOSTATIC ABNORMAL [None]
  - BLOOD CHLORIDE INCREASED [None]
  - HAEMOGLOBIN DECREASED [None]
  - HAEMATOCRIT DECREASED [None]
  - BLOOD PRESSURE DECREASED [None]
  - INFUSION SITE INFECTION [None]
  - TACHYCARDIA [None]
  - LIVER FUNCTION TEST ABNORMAL [None]
  - CHEST DISCOMFORT [None]
  - ABDOMINAL DISTENSION [None]
  - ABDOMINAL DISCOMFORT [None]
  - HAEMATEMESIS [None]
  - URINARY INCONTINENCE [None]
  - DEHYDRATION [None]
  - BLOOD ALBUMIN DECREASED [None]
  - FATIGUE [None]
  - CONSTIPATION [None]
  - DYSPEPSIA [None]
  - ANAEMIA [None]
  - DYSPNOEA [None]
  - NAUSEA [None]
  - GASTRIC OCCULT BLOOD POSITIVE [None]
  - INTERNATIONAL NORMALISED RATIO DECREASED [None]
  - GASTRIC ULCER [None]
  - GASTROINTESTINAL SOUNDS ABNORMAL [None]
  - MENSTRUATION IRREGULAR [None]
  - WHITE BLOOD CELL COUNT INCREASED [None]
  - PALLOR [None]
  - ABDOMINAL PAIN UPPER [None]
  - LOSS OF CONSCIOUSNESS [None]
  - ASTHENIA [None]
  - OEDEMA PERIPHERAL [None]
  - ERYTHEMA [None]
  - BLOOD CALCIUM DECREASED [None]
  - BLOOD UREA [None]
